FAERS Safety Report 14494878 (Version 6)
Quarter: 2018Q2

REPORT INFORMATION
  Report Type: Spontaneous
  Country: NL (occurrence: NL)
  Receive Date: 20180206
  Receipt Date: 20180430
  Transmission Date: 20180711
  Serious: Yes (Death, Life-Threatening, Hospitalization, Other)
  Sender: FDA-Public Use
  Company Number: PHHY2018NL016631

PATIENT
  Age: 68 Year
  Sex: Male

DRUGS (7)
  1. INFLIXIMAB [Suspect]
     Active Substance: INFLIXIMAB
     Indication: COLITIS
  2. PREDNISOLONE. [Suspect]
     Active Substance: PREDNISOLONE
     Indication: AUTOIMMUNE COLITIS
  3. PREDNISOLONE. [Suspect]
     Active Substance: PREDNISOLONE
     Indication: COLITIS
  4. IPILIMUMAB [Suspect]
     Active Substance: IPILIMUMAB
     Indication: MALIGNANT MELANOMA
  5. INFLIXIMAB [Suspect]
     Active Substance: INFLIXIMAB
     Indication: COLITIS
     Route: 065
  6. PREDNISOLONE. [Suspect]
     Active Substance: PREDNISOLONE
     Indication: HYPOPHYSITIS
     Dosage: 2 MG/KG, UNK
     Route: 065
  7. IPILIMUMAB [Suspect]
     Active Substance: IPILIMUMAB
     Indication: METASTATIC NEOPLASM
     Dosage: 3 MG/KG, UNK
     Route: 065

REACTIONS (12)
  - Herpes simplex encephalitis [Fatal]
  - Pyrexia [Fatal]
  - Colitis [Unknown]
  - Status epilepticus [Fatal]
  - Clonic convulsion [Fatal]
  - Confusional state [Fatal]
  - Disease recurrence [Fatal]
  - Speech disorder [Fatal]
  - Respiratory failure [Fatal]
  - Hypophysitis [Unknown]
  - Meningoencephalitis herpetic [Fatal]
  - Muscular weakness [Fatal]

NARRATIVE: CASE EVENT DATE: 2014
